FAERS Safety Report 9171895 (Version 1)
Quarter: 2013Q1

REPORT INFORMATION
  Report Type: Spontaneous
  Country: US (occurrence: None)
  Receive Date: 20130313
  Receipt Date: 20130313
  Transmission Date: 20140127
  Serious: No
  Sender: FDA-Public Use
  Company Number: AEUSA201200060

PATIENT
  Age: 51 Year
  Sex: Male
  Weight: 90.72 kg

DRUGS (6)
  1. PROLASTIN-C [Suspect]
     Indication: ALPHA-1 ANTI-TRYPSIN DEFICIENCY
     Route: 042
     Dates: start: 201109, end: 201202
  2. SPIRIVA (CON.) [Concomitant]
  3. SYMBICORT (CON.) [Concomitant]
  4. VENTOLIN /00139502/ (CON.) [Concomitant]
  5. XANAX (CON.) [Concomitant]
  6. REQUIP [Concomitant]

REACTIONS (2)
  - Muscle spasms [None]
  - Malaise [None]
